FAERS Safety Report 8111612 (Version 4)
Quarter: 2013Q3

REPORT INFORMATION
  Report Type: Spontaneous
  Country: US (occurrence: US)
  Receive Date: 20110829
  Receipt Date: 20130821
  Transmission Date: 20140515
  Serious: Yes (Hospitalization)
  Sender: FDA-Public Use
  Company Number: US-BAYER-2011-075122

PATIENT
  Age: 24 Year
  Sex: Female

DRUGS (4)
  1. YASMIN [Suspect]
     Indication: ORAL CONTRACEPTION
     Dosage: UNK
     Dates: start: 200203, end: 200211
  2. ZOMIG [Concomitant]
     Dosage: UNK
     Dates: start: 200211
  3. AMITRIPTYLIN [Concomitant]
     Dosage: UNK
     Dates: start: 200210
  4. MAXALT [Concomitant]
     Dosage: UNK
     Dates: start: 200209

REACTIONS (3)
  - Deep vein thrombosis [None]
  - Injury [None]
  - Pain [None]
